FAERS Safety Report 20855988 (Version 1)
Quarter: 2022Q2

REPORT INFORMATION
  Report Type: Spontaneous
  Country: US (occurrence: US)
  Receive Date: 20220520
  Receipt Date: 20220520
  Transmission Date: 20220721
  Serious: No
  Sender: FDA-Public Use
  Company Number: US-BRISTOL-MYERS SQUIBB COMPANY-2022-019554

PATIENT
  Age: 80 Year
  Sex: Male

DRUGS (2)
  1. POMALYST [Suspect]
     Active Substance: POMALIDOMIDE
     Indication: Product used for unknown indication
     Dosage: 4 MILLIGRAM, DAILY, 21 ON, 7 OFF
     Route: 048
     Dates: start: 20220321
  2. POMALYST [Suspect]
     Active Substance: POMALIDOMIDE
     Dosage: 3 MG,  14 DAYS ON, 14 DAYS OF
     Route: 048

REACTIONS (2)
  - Fatigue [Unknown]
  - Myalgia [Unknown]

NARRATIVE: CASE EVENT DATE: 20220322
